FAERS Safety Report 8830520 (Version 1)
Quarter: 2012Q4

REPORT INFORMATION
  Report Type: 
  Country: US (occurrence: US)
  Receive Date: 20121009
  Receipt Date: 20121009
  Transmission Date: 20130627
  Serious: No
  Sender: FDA-Public Use
  Company Number: US-ELI_LILLY_AND_COMPANY-US201209007960

PATIENT
  Age: 26 Year
  Sex: Female

DRUGS (3)
  1. CYMBALTA [Suspect]
     Indication: DEPRESSION
     Dosage: 90 mg, UNK
  2. CYMBALTA [Suspect]
     Dosage: 60 mg, UNK
  3. CYMBALTA [Suspect]
     Dosage: 30 mg, UNK

REACTIONS (1)
  - Hepatic enzyme increased [Unknown]
